FAERS Safety Report 15696744 (Version 4)
Quarter: 2019Q3

REPORT INFORMATION
  Report Type: Spontaneous
  Country: US (occurrence: US)
  Receive Date: 20181206
  Receipt Date: 20190912
  Transmission Date: 20191004
  Serious: Yes (Other)
  Sender: FDA-Public Use
  Company Number: US-PFIZER INC-2018493167

PATIENT
  Age: 56 Year
  Sex: Female

DRUGS (7)
  1. XELJANZ XR [Suspect]
     Active Substance: TOFACITINIB CITRATE
     Indication: RHEUMATOID ARTHRITIS
     Dosage: 11 MG, DAILY
     Route: 048
     Dates: start: 201603
  2. PREDNISONE. [Concomitant]
     Active Substance: PREDNISONE
     Dosage: UNK
  3. ROBAXIN [Concomitant]
     Active Substance: METHOCARBAMOL
     Dosage: UNK
  4. PLAQUENIL [Concomitant]
     Active Substance: HYDROXYCHLOROQUINE SULFATE
     Dosage: UNK
  5. GABAPENTIN. [Concomitant]
     Active Substance: GABAPENTIN
     Dosage: UNK
  6. ZANAFLEX [Concomitant]
     Active Substance: TIZANIDINE HYDROCHLORIDE
     Dosage: UNK
  7. ARAVA [Concomitant]
     Active Substance: LEFLUNOMIDE
     Dosage: UNK

REACTIONS (5)
  - Thyroid disorder [Unknown]
  - Arthralgia [Unknown]
  - Diabetes mellitus [Unknown]
  - Hepatitis [Unknown]
  - Acne [Unknown]
